FAERS Safety Report 5021946-X (Version None)
Quarter: 2006Q2

REPORT INFORMATION
  Report Type: 
  Country: None (occurrence: None)
  Receive Date: 20060605
  Receipt Date: 20060525
  Transmission Date: 20061013
  Serious: Yes (Other)
  Sender: FDA-Public Use
  Company Number: 2006067958

PATIENT
  Sex: Female

DRUGS (3)
  1. AMLODIPINE [Suspect]
     Indication: BLOOD PRESSURE INCREASED
     Dosage: 5 MG, ORAL
     Route: 048
     Dates: start: 20060329, end: 20060408
  2. ATENOLOL [Concomitant]
  3. BENDROFLUMETHIAZIDE [Concomitant]

REACTIONS (4)
  - ABDOMINAL DISTENSION [None]
  - HEADACHE [None]
  - MUSCULOSKELETAL STIFFNESS [None]
  - OEDEMA PERIPHERAL [None]
